FAERS Safety Report 17170141 (Version 1)
Quarter: 2019Q4

REPORT INFORMATION
  Report Type: Spontaneous
  Country: JP (occurrence: JP)
  Receive Date: 20191218
  Receipt Date: 20191218
  Transmission Date: 20200122
  Serious: Yes (Other)
  Sender: FDA-Public Use
  Company Number: JP-ELI_LILLY_AND_COMPANY-JP201912005425

PATIENT
  Age: 77 Year
  Sex: Male

DRUGS (4)
  1. CARBOPLATIN. [Suspect]
     Active Substance: CARBOPLATIN
     Indication: PLEURAL MESOTHELIOMA MALIGNANT
     Dosage: UNK
     Route: 065
     Dates: start: 201808
  2. ALIMTA [Suspect]
     Active Substance: PEMETREXED DISODIUM
     Indication: PLEURAL MESOTHELIOMA MALIGNANT
     Dosage: UNK
     Route: 041
     Dates: start: 201808
  3. PREGABALIN. [Concomitant]
     Active Substance: PREGABALIN
  4. MORPHINE [Concomitant]
     Active Substance: MORPHINE

REACTIONS (4)
  - Gastrointestinal haemorrhage [Unknown]
  - Off label use [Unknown]
  - Anaemia [Unknown]
  - Neutrophil count decreased [Unknown]
